FAERS Safety Report 16942700 (Version 1)
Quarter: 2019Q4

REPORT INFORMATION
  Report Type: Report from Study
  Country: FR (occurrence: FR)
  Receive Date: 20191021
  Receipt Date: 20191021
  Transmission Date: 20200122
  Serious: Yes (Hospitalization, Other)
  Sender: FDA-Public Use
  Company Number: PHHY2019FR210069

PATIENT
  Age: 81 Year
  Sex: Female
  Weight: 66 kg

DRUGS (11)
  1. KARDEGIC [Concomitant]
     Active Substance: ASPIRIN DL-LYSINE
     Indication: PROPHYLAXIS
     Dosage: 75 MG, QD
     Route: 048
  2. AMLOR [Concomitant]
     Active Substance: AMLODIPINE BESYLATE
     Indication: HYPERTENSION
     Dosage: 5 MG, QD
     Route: 048
     Dates: start: 20181218
  3. LEVOTHYROX [Concomitant]
     Active Substance: LEVOTHYROXINE
     Indication: HYPOTHYROIDISM
     Dosage: 125 UG, QD
     Route: 048
     Dates: start: 1998
  4. PANTOPRAZOLE [Concomitant]
     Active Substance: PANTOPRAZOLE
     Indication: PRODUCT USED FOR UNKNOWN INDICATION
     Route: 065
  5. PALBOCICLIB [Suspect]
     Active Substance: PALBOCICLIB
     Indication: BREAST CANCER METASTATIC
     Dosage: 75 MG, QD CYCLIC
     Route: 048
     Dates: start: 20180221, end: 20190814
  6. CALCIPARINE [Concomitant]
     Active Substance: HEPARIN CALCIUM
     Indication: PRODUCT USED FOR UNKNOWN INDICATION
     Dosage: 0.6 OT, BID
     Route: 065
  7. LETROZOLE. [Suspect]
     Active Substance: LETROZOLE
     Indication: BREAST CANCER METASTATIC
     Dosage: 2.5 MG, QD
     Route: 048
     Dates: start: 20180221, end: 20190814
  8. PAROXETIN [Concomitant]
     Active Substance: PAROXETINE HYDROCHLORIDE
     Indication: DEPRESSION
     Dosage: 20 MG, QD
     Route: 048
     Dates: start: 201712
  9. LOXEN [Concomitant]
     Indication: HYPERTENSION
     Dosage: 50 MG, QD
     Route: 048
     Dates: start: 20181218
  10. ATARAX [Concomitant]
     Active Substance: HYDROXYZINE HYDROCHLORIDE
     Indication: PRODUCT USED FOR UNKNOWN INDICATION
     Route: 065
  11. TINZAPARIN SODIUM [Concomitant]
     Active Substance: TINZAPARIN SODIUM
     Indication: NEOPLASM MALIGNANT
     Dosage: 14000 IU, UNK
     Route: 065

REACTIONS (20)
  - Escherichia infection [Unknown]
  - Urinary tract infection [Unknown]
  - Fibrin D dimer increased [Unknown]
  - Constipation [Unknown]
  - Activated partial thromboplastin time prolonged [Unknown]
  - Bundle branch block right [Unknown]
  - Malaise [Unknown]
  - International normalised ratio decreased [Unknown]
  - Troponin increased [Unknown]
  - pH body fluid decreased [Unknown]
  - Presyncope [Unknown]
  - Red blood cells urine positive [Unknown]
  - Atrial natriuretic peptide increased [Unknown]
  - Blood creatinine increased [Unknown]
  - Hypertension [Unknown]
  - Oedema peripheral [Unknown]
  - C-reactive protein increased [Recovering/Resolving]
  - Glomerular filtration rate decreased [Unknown]
  - Discomfort [Unknown]
  - Pulmonary embolism [Recovered/Resolved]

NARRATIVE: CASE EVENT DATE: 20190814
